FAERS Safety Report 4422039-2 (Version None)
Quarter: 2004Q3

REPORT INFORMATION
  Report Type: 
  Country: None (occurrence: None)
  Receive Date: 20040806
  Receipt Date: 20040803
  Transmission Date: 20050211
  Serious: Yes (Death)
  Sender: FDA-Public Use
  Company Number: 2004UW16445

PATIENT
  Age: 41 Year
  Sex: Male
  Weight: 113.3993 kg

DRUGS (6)
  1. SEROQUEL [Suspect]
     Indication: SCHIZOPHRENIA
     Dosage: 600 MG PO
     Route: 048
     Dates: start: 20040301, end: 20040610
  2. SEROQUEL [Suspect]
     Indication: SCHIZOPHRENIA
     Dosage: 800 MG
     Dates: start: 20040611
  3. ABILIFY [Concomitant]
  4. TRAZODONE [Concomitant]
  5. LISINOPRIL [Concomitant]
  6. DOSTINEX [Concomitant]

REACTIONS (2)
  - CARDIAC ARREST [None]
  - HYPERTHERMIA [None]
